FAERS Safety Report 5333035-5 (Version None)
Quarter: 2007Q1

REPORT INFORMATION
  Report Type: 
  Country: None (occurrence: None)
  Receive Date: 20070306
  Receipt Date: 20060623
  Transmission Date: 20070707
  Serious: Yes (Other)
  Sender: FDA-Public Use
  Company Number: A03200604149

PATIENT
  Age: 77 Year
  Sex: Male

DRUGS (5)
  1. PLAVIX [Suspect]
     Indication: CARDIAC VALVE DISEASE
     Dosage: 75 MG QD - ORAL
     Route: 048
     Dates: start: 20050101, end: 20060601
  2. COUMADIN [Suspect]
     Indication: CARDIAC VALVE DISEASE
     Dosage: ORAL
     Route: 048
     Dates: start: 20050101, end: 20060601
  3. DIGOXIN [Concomitant]
  4. SIMVASTATIN [Concomitant]
  5. FUROSEMIDE [Concomitant]

REACTIONS (1)
  - HAEMATURIA [None]
